FAERS Safety Report 18610876 (Version 1)
Quarter: 2020Q4

REPORT INFORMATION
  Report Type: Spontaneous
  Country: US (occurrence: US)
  Receive Date: 20201214
  Receipt Date: 20201214
  Transmission Date: 20210114
  Serious: No
  Sender: FDA-Public Use
  Company Number: US-SA-2020SA356142

PATIENT

DRUGS (2)
  1. ELITEK [Suspect]
     Active Substance: RASBURICASE
     Indication: BLOOD URIC ACID INCREASED
  2. ELITEK [Suspect]
     Active Substance: RASBURICASE
     Indication: TUMOUR LYSIS SYNDROME
     Dosage: 6MG AND TWO 3MG DOSES OVER THE LAST 48 HOURS
     Dates: start: 20201208, end: 20201210

REACTIONS (1)
  - Drug ineffective [Unknown]

NARRATIVE: CASE EVENT DATE: 20201210
